FAERS Safety Report 5471904-6 (Version None)
Quarter: 2007Q3

REPORT INFORMATION
  Report Type: 
  Country: None (occurrence: None)
  Receive Date: 20070928
  Receipt Date: 20070402
  Transmission Date: 20080115
  Serious: No
  Sender: FDA-Public Use
  Company Number: US-BRISTOL-MYERS SQUIBB COMPANY-13735469

PATIENT
  Age: 59 Year
  Sex: Male
  Weight: 97 kg

DRUGS (6)
  1. DEFINITY [Suspect]
     Indication: ECHOCARDIOGRAM
  2. PLAVIX [Concomitant]
  3. ASPIRIN [Concomitant]
  4. ENBREL [Concomitant]
  5. COREG [Concomitant]
  6. LIPITOR [Concomitant]

REACTIONS (1)
  - BACK PAIN [None]
